FAERS Safety Report 5103027-X (Version None)
Quarter: 2006Q3

REPORT INFORMATION
  Report Type: 
  Country: None (occurrence: None)
  Receive Date: 20060908
  Receipt Date: 20060830
  Transmission Date: 20061208
  Serious: No
  Sender: FDA-Public Use
  Company Number: BR-2006-024783

PATIENT
  Age: 36 Year
  Sex: Female

DRUGS (1)
  1. MIRENA [Suspect]
     Indication: MENSTRUAL DISORDER
     Dosage: 20 UG/DAY, CONT, INTRA-UTERINE
     Route: 015
     Dates: start: 20020601

REACTIONS (6)
  - HYPOMENORRHOEA [None]
  - INCISIONAL HERNIA [None]
  - SCAR [None]
  - UTERINE CYST [None]
  - UTERINE ENLARGEMENT [None]
  - UTERINE LEIOMYOMA [None]
